FAERS Safety Report 10072068 (Version 2)
Quarter: 2014Q2

REPORT INFORMATION
  Report Type: Spontaneous
  Country: IT (occurrence: None)
  Receive Date: 20140409
  Receipt Date: 20140527
  Transmission Date: 20141212
  Serious: Yes (Other)
  Sender: FDA-Public Use
  Company Number: 2272938

PATIENT
  Age: 74 Year
  Sex: Female
  Weight: 64 kg

DRUGS (2)
  1. CYTARABINE [Suspect]
     Indication: NON-HODGKIN^S LYMPHOMA
     Dosage: 1 G PER SQUARE METER OF BODY SURFACE AREA (TOTAL)?(NOT OTHERWISE SPECIFIED)
     Route: 042
     Dates: start: 20140313, end: 20140313
  2. ACICLOVIR [Concomitant]

REACTIONS (1)
  - Depressed level of consciousness [None]
